FAERS Safety Report 9747032 (Version 3)
Quarter: 2013Q4

REPORT INFORMATION
  Report Type: Spontaneous
  Country: DE (occurrence: DE)
  Receive Date: 20131211
  Receipt Date: 20131223
  Transmission Date: 20140711
  Serious: Yes (Disabling)
  Sender: FDA-Public Use
  Company Number: DE-BAXTER-2013BAX047283

PATIENT
  Age: 48 Year
  Sex: Female
  Weight: 68 kg

DRUGS (6)
  1. EXTRANEAL [Suspect]
     Indication: RENAL FAILURE CHRONIC
     Dosage: 1 BAG
     Route: 033
     Dates: start: 20131122
  2. EXTRANEAL [Suspect]
     Indication: PERITONEAL DIALYSIS
     Route: 033
     Dates: start: 20131122
  3. EXTRANEAL [Suspect]
     Indication: PERITONEAL DIALYSIS
  4. PHYSIONEAL 40 GLUCOSE 1,36 % W/V 13,6 MG/ML PERITONEALDIALYSEL?SUNG [Suspect]
     Indication: RENAL FAILURE CHRONIC
     Dosage: 2 BAGS
     Route: 033
     Dates: start: 20131122
  5. PHYSIONEAL 40 GLUCOSE 1,36 % W/V 13,6 MG/ML PERITONEALDIALYSEL?SUNG [Suspect]
     Indication: PERITONEAL DIALYSIS
     Route: 033
     Dates: start: 20131122
  6. PHYSIONEAL 40 GLUCOSE 1,36 % W/V 13,6 MG/ML PERITONEALDIALYSEL?SUNG [Suspect]
     Indication: PERITONEAL DIALYSIS

REACTIONS (7)
  - Sleep disorder [Not Recovered/Not Resolved]
  - Anxiety [Not Recovered/Not Resolved]
  - Medical device complication [Not Recovered/Not Resolved]
  - Unevaluable event [Not Recovered/Not Resolved]
  - Incorrect dose administered [Not Recovered/Not Resolved]
  - Procedural pain [Not Recovered/Not Resolved]
  - Peritoneal dialysis complication [Not Recovered/Not Resolved]
